FAERS Safety Report 7113069-0 (Version None)
Quarter: 2010Q4

REPORT INFORMATION
  Report Type: 
  Country: None (occurrence: None)
  Receive Date: 20101119
  Receipt Date: 20101109
  Transmission Date: 20110411
  Serious: Yes (Other)
  Sender: FDA-Public Use
  Company Number: US-JNJFOC-20100604190

PATIENT
  Sex: Male

DRUGS (2)
  1. LEVAQUIN [Suspect]
     Indication: SINUSITIS
     Route: 048
  2. MEDROL [Suspect]
     Indication: SINUSITIS
     Route: 065

REACTIONS (9)
  - ARTHRALGIA [None]
  - BURSITIS [None]
  - DERMATITIS [None]
  - MENISCUS LESION [None]
  - PAIN [None]
  - ROTATOR CUFF SYNDROME [None]
  - SYNOVITIS [None]
  - TENDON RUPTURE [None]
  - TENDONITIS [None]
